FAERS Safety Report 9462758 (Version 2)
Quarter: 2013Q3

REPORT INFORMATION
  Report Type: Report from Study
  Country: US (occurrence: US)
  Receive Date: 20130816
  Receipt Date: 20130820
  Transmission Date: 20140515
  Serious: Yes (Hospitalization, Other)
  Sender: FDA-Public Use
  Company Number: US-ALEXION PHARMACEUTICALS INC.-A201301903

PATIENT
  Sex: Female

DRUGS (11)
  1. SOLIRIS [Suspect]
     Indication: PAROXYSMAL NOCTURNAL HAEMOGLOBINURIA
     Dosage: 600 MG, QW
     Route: 042
     Dates: start: 20100706
  2. SOLIRIS [Suspect]
     Dosage: 900 MG, SINGLE
     Route: 042
     Dates: start: 20130812
  3. CLONAZEPAM [Concomitant]
     Dosage: 0.5 MG, TID
     Route: 048
     Dates: start: 20110809
  4. RISPERIDONE [Concomitant]
     Dosage: 1 MG, QD
     Route: 048
     Dates: start: 20110823
  5. DOCUSATE SODIUM [Concomitant]
     Dosage: 100 MG, QD
     Route: 048
     Dates: start: 20110823
  6. IRON [Concomitant]
     Dosage: 325 MG, BID
     Route: 048
     Dates: start: 20110824
  7. CITALOPRAM HYDROBROMIDE [Concomitant]
     Dosage: 20 MG, QD
     Route: 048
     Dates: start: 20111215
  8. CETIRIZINE [Concomitant]
     Dosage: 10 MG, QD
     Route: 048
     Dates: start: 20130506
  9. ARIPIPRAZOLE [Concomitant]
     Dosage: 5 MG, QD
     Route: 048
     Dates: start: 20130506
  10. OMEPRAZOLE [Concomitant]
     Dosage: 20 MG, QD
     Route: 048
     Dates: start: 20130506
  11. POTASSIUM CHLORIDE [Concomitant]
     Dosage: UNK
     Route: 048
     Dates: start: 20130506

REACTIONS (3)
  - Cholelithiasis [Recovering/Resolving]
  - Transfusion [Recovering/Resolving]
  - Abdominal pain [Recovering/Resolving]
